FAERS Safety Report 23081614 (Version 1)
Quarter: 2023Q4

REPORT INFORMATION
  Report Type: Spontaneous
  Country: SE (occurrence: SE)
  Receive Date: 20231019
  Receipt Date: 20231019
  Transmission Date: 20240109
  Serious: Yes (Hospitalization)
  Sender: FDA-Public Use
  Company Number: None

PATIENT
  Age: 53 Year
  Sex: Female

DRUGS (1)
  1. BOTOX [Suspect]
     Active Substance: ONABOTULINUMTOXINA
     Indication: Product used for unknown indication
     Dosage: TIME INTERVAL: AS NECESSARY: LATEST BOTOX TREATMENT 2023-08-11
     Route: 065
     Dates: start: 20230811, end: 20230811

REACTIONS (2)
  - Dysarthria [Unknown]
  - Facial asymmetry [Unknown]

NARRATIVE: CASE EVENT DATE: 20230822
